FAERS Safety Report 5595512-1 (Version None)
Quarter: 2008Q1

REPORT INFORMATION
  Report Type: 
  Country: None (occurrence: None)
  Receive Date: 20080118
  Receipt Date: 20080107
  Transmission Date: 20080703
  Serious: Yes (Disabling)
  Sender: FDA-Public Use
  Company Number: HU-JNJFOC-20080102690

PATIENT
  Sex: Female

DRUGS (9)
  1. RISPERDAL CONSTA [Suspect]
     Indication: DEPRESSION
     Route: 030
  2. RISPERDAL CONSTA [Suspect]
     Indication: SCHIZOAFFECTIVE DISORDER
     Route: 030
  3. RISPERDAL CONSTA [Suspect]
     Indication: PSYCHOTIC DISORDER
     Route: 030
  4. RISPERDAL CONSTA [Suspect]
     Indication: SCHIZOPHRENIA
     Route: 030
  5. CITALOPRAM [Concomitant]
     Indication: DEPRESSION
     Route: 048
  6. HARMONET [Concomitant]
     Indication: DYSMENORRHOEA
  7. AKINETON [Concomitant]
     Indication: EXTRAPYRAMIDAL DISORDER
     Route: 048
  8. LAMICTAL [Concomitant]
     Indication: DEPRESSION
     Route: 048
  9. LAMICTAL [Concomitant]
     Indication: BIPOLAR DISORDER
     Route: 048

REACTIONS (4)
  - BLOOD GROWTH HORMONE INCREASED [None]
  - BLOOD PROLACTIN INCREASED [None]
  - MENSTRUATION IRREGULAR [None]
  - PITUITARY TUMOUR BENIGN [None]
